FAERS Safety Report 8012613-9 (Version None)
Quarter: 2011Q4

REPORT INFORMATION
  Report Type: 
  Country: None (occurrence: None)
  Receive Date: 20111229
  Receipt Date: 20111219
  Transmission Date: 20120403
  Serious: Yes (Hospitalization, Other)
  Sender: FDA-Public Use
  Company Number: US-BAYER-2011-111172

PATIENT
  Age: 34 Year
  Sex: Female

DRUGS (7)
  1. PHENTERMINE HYDROCHLORIDE [Concomitant]
     Dosage: 37.5 MG, QD
     Route: 048
     Dates: start: 20090731, end: 20091128
  2. NEXIUM [Concomitant]
     Dosage: UNK
     Dates: start: 20091106
  3. YAZ [Suspect]
     Indication: CONTRACEPTION
     Dosage: UNK
     Route: 048
     Dates: start: 20020701, end: 20040501
  4. YAZ [Suspect]
     Indication: PREMENSTRUAL SYNDROME
     Dosage: UNK
     Route: 048
     Dates: start: 20080501, end: 20090801
  5. MEDROXYPROGESTERONE [Concomitant]
     Dosage: 150 MG, UNK
     Route: 030
     Dates: start: 20090818
  6. DIAZEPAM [Concomitant]
     Dosage: 10 MG, UNK
     Route: 048
     Dates: start: 20090924
  7. ZOFRAN [Concomitant]
     Dosage: UNK
     Dates: start: 20091106

REACTIONS (5)
  - CHOLECYSTITIS CHRONIC [None]
  - CHOLECYSTITIS INFECTIVE [None]
  - THROMBOCYTOPENIA [None]
  - ABDOMINAL PAIN [None]
  - WHITE BLOOD CELL COUNT DECREASED [None]
